FAERS Safety Report 13754325 (Version 1)
Quarter: 2017Q3

REPORT INFORMATION
  Report Type: Spontaneous
  Country: US (occurrence: US)
  Receive Date: 20170714
  Receipt Date: 20170714
  Transmission Date: 20171127
  Serious: Yes (Other)
  Sender: FDA-Public Use
  Company Number: US-ALVOGEN-2017-ALVOGEN-092670

PATIENT
  Age: 32 Year
  Sex: Female

DRUGS (4)
  1. EVEROLIMUS [Interacting]
     Active Substance: EVEROLIMUS
     Indication: HODGKIN^S DISEASE
     Route: 048
     Dates: start: 201107
  2. VORICONAZOLE. [Suspect]
     Active Substance: VORICONAZOLE
     Indication: ASPERGILLUS INFECTION
  3. EVEROLIMUS [Interacting]
     Active Substance: EVEROLIMUS
     Indication: HODGKIN^S DISEASE
     Route: 048
     Dates: start: 201107
  4. VORICONAZOLE. [Interacting]
     Active Substance: VORICONAZOLE
     Indication: ASPERGILLUS INFECTION

REACTIONS (2)
  - Drug interaction [Recovered/Resolved]
  - Nephrotic syndrome [Recovered/Resolved]
